FAERS Safety Report 7406392-3 (Version None)
Quarter: 2011Q2

REPORT INFORMATION
  Report Type: 
  Country: None (occurrence: None)
  Receive Date: 20110411
  Receipt Date: 20110328
  Transmission Date: 20111010
  Serious: Yes (Hospitalization, Other)
  Sender: FDA-Public Use
  Company Number: PHHY2011BR27248

PATIENT
  Sex: Female

DRUGS (2)
  1. CAPTOPRIL [Concomitant]
     Indication: HYPERTENSION
     Dosage: 3 TABLETS DAILY
     Route: 048
  2. ZELMAC [Suspect]
     Indication: CONSTIPATION
     Dosage: 2 TABLET DAILY
     Route: 048

REACTIONS (5)
  - PULMONARY OEDEMA [None]
  - BLOOD PRESSURE INCREASED [None]
  - DYSPNOEA [None]
  - HYPERTENSIVE CRISIS [None]
  - ACUTE RESPIRATORY FAILURE [None]
